FAERS Safety Report 14872542 (Version 1)
Quarter: 2018Q2

REPORT INFORMATION
  Report Type: Spontaneous
  Country: US (occurrence: US)
  Receive Date: 20180510
  Receipt Date: 20180510
  Transmission Date: 20180711
  Serious: Yes (Other)
  Sender: FDA-Public Use
  Company Number: PHHY2018US077423

PATIENT
  Age: 55 Year
  Sex: Male

DRUGS (2)
  1. DOCETAXEL. [Suspect]
     Active Substance: DOCETAXEL
     Indication: THYROID CANCER
     Dosage: UNK
     Route: 065
  2. DOXORUBICIN [Suspect]
     Active Substance: DOXORUBICIN
     Indication: THYROID CANCER
     Dosage: UNK
     Route: 065

REACTIONS (3)
  - Failure to thrive [Unknown]
  - Pneumonitis [Unknown]
  - Cystitis haemorrhagic [Unknown]
